FAERS Safety Report 21642164 (Version 1)
Quarter: 2022Q4

REPORT INFORMATION
  Report Type: Report from Study
  Country: US (occurrence: US)
  Receive Date: 20221125
  Receipt Date: 20221125
  Transmission Date: 20230112
  Serious: No
  Sender: FDA-Public Use
  Company Number: US-ABBVIE-4163734

PATIENT
  Sex: Male

DRUGS (2)
  1. HUMIRA [Suspect]
     Active Substance: ADALIMUMAB
     Indication: Colitis ulcerative
     Dosage: INITIAL LOADING DOSE
     Route: 058
     Dates: start: 20221011, end: 20221011
  2. HUMIRA [Suspect]
     Active Substance: ADALIMUMAB
     Dosage: SECOND DOSE
     Route: 058
     Dates: start: 20221011

REACTIONS (2)
  - Injection site pain [Recovered/Resolved]
  - Injection site haemorrhage [Recovered/Resolved]
